FAERS Safety Report 25657074 (Version 1)
Quarter: 2025Q3

REPORT INFORMATION
  Report Type: Spontaneous
  Country: EU (occurrence: EU)
  Receive Date: 20250808
  Receipt Date: 20250808
  Transmission Date: 20251020
  Serious: Yes (Other)
  Sender: ASTELLAS
  Company Number: EU-ASTELLAS-2025-AER-042896

PATIENT
  Sex: Male

DRUGS (2)
  1. XTANDI [Suspect]
     Active Substance: ENZALUTAMIDE
     Indication: Product used for unknown indication
     Dosage: 160 MG OF XTANDI DAILY SINCE THE BEGINNING OF JUNE
     Route: 065
     Dates: start: 202506
  2. XTANDI [Suspect]
     Active Substance: ENZALUTAMIDE
     Dosage: HALVED HIS XTANDI DOSAGE
     Route: 065
     Dates: start: 2025

REACTIONS (1)
  - Foreign body in throat [Not Recovered/Not Resolved]

NARRATIVE: CASE EVENT DATE: 20250101
